FAERS Safety Report 10045110 (Version 2)
Quarter: 2014Q1

REPORT INFORMATION
  Report Type: Spontaneous
  Country: US (occurrence: US)
  Receive Date: 20140328
  Receipt Date: 20140328
  Transmission Date: 20141002
  Serious: Yes (Other)
  Sender: FDA-Public Use
  Company Number: US-GE HEALTHCARE MEDICAL DIAGNOSTICS-OSCN-PR-0906S-0324

PATIENT
  Age: 38 Year
  Sex: Male

DRUGS (25)
  1. OMNISCAN [Suspect]
     Indication: BRAIN NEOPLASM
     Route: 042
     Dates: start: 19980317, end: 19980317
  2. OMNISCAN [Suspect]
     Indication: PRODUCT USED FOR UNKNOWN INDICATION
     Route: 042
     Dates: start: 19980417, end: 19980417
  3. OMNISCAN [Suspect]
     Route: 042
     Dates: start: 19980420, end: 19980420
  4. OMNISCAN [Suspect]
     Route: 042
     Dates: start: 19981026, end: 19981026
  5. OMNISCAN [Suspect]
     Route: 042
     Dates: start: 19990614, end: 19990614
  6. OMNISCAN [Suspect]
     Route: 042
     Dates: start: 19990621, end: 19990621
  7. OMNISCAN [Suspect]
     Route: 042
     Dates: start: 19990817, end: 19990817
  8. OMNISCAN [Suspect]
     Route: 042
     Dates: start: 20000104, end: 20000104
  9. OMNISCAN [Suspect]
     Route: 042
     Dates: start: 20000626, end: 20000626
  10. OMNISCAN [Suspect]
     Route: 042
     Dates: start: 20001102, end: 20001102
  11. OMNISCAN [Suspect]
     Route: 042
     Dates: start: 20010524, end: 20010524
  12. OMNISCAN [Suspect]
     Route: 042
     Dates: start: 20010829, end: 20010829
  13. OMNISCAN [Suspect]
     Route: 042
     Dates: start: 20011204, end: 20011204
  14. OMNISCAN [Suspect]
     Route: 042
     Dates: start: 20020826, end: 20020826
  15. OMNISCAN [Suspect]
     Route: 042
     Dates: start: 20040825, end: 20040825
  16. MAGNEVIST [Suspect]
     Indication: PRODUCT USED FOR UNKNOWN INDICATION
     Route: 042
     Dates: start: 19970429, end: 19970429
  17. MAGNEVIST [Suspect]
     Route: 042
     Dates: start: 19970808, end: 19970808
  18. MAGNEVIST [Suspect]
     Route: 042
     Dates: start: 19971216, end: 19971216
  19. MAGNEVIST [Suspect]
     Route: 042
     Dates: start: 20030529, end: 20030529
  20. MAGNEVIST [Suspect]
     Route: 042
     Dates: start: 20040418, end: 20040418
  21. MAGNEVIST [Suspect]
     Route: 042
     Dates: start: 20040614, end: 20040614
  22. MAGNEVIST [Suspect]
     Route: 042
     Dates: start: 20041013, end: 20041013
  23. MAGNEVIST [Suspect]
     Route: 042
     Dates: start: 20050602, end: 20050602
  24. MAGNEVIST [Suspect]
     Route: 042
     Dates: start: 20050811, end: 20050811
  25. MAGNEVIST [Suspect]
     Route: 042
     Dates: start: 20060329, end: 20060329

REACTIONS (1)
  - Nephrogenic systemic fibrosis [Not Recovered/Not Resolved]
